FAERS Safety Report 6509119-2 (Version None)
Quarter: 2009Q4

REPORT INFORMATION
  Report Type: 
  Country: None (occurrence: None)
  Receive Date: 20091221
  Receipt Date: 20091210
  Transmission Date: 20100525
  Serious: Yes (Other)
  Sender: FDA-Public Use
  Company Number: DE-GILEAD-E2B_00000490

PATIENT
  Sex: Female
  Weight: 81 kg

DRUGS (2)
  1. AMBRISENTAN [Suspect]
     Indication: PULMONARY ARTERIAL HYPERTENSION
     Route: 048
     Dates: start: 20090901, end: 20090101
  2. REVATIO [Concomitant]
     Indication: PULMONARY ARTERIAL HYPERTENSION
     Route: 048
     Dates: start: 20090301

REACTIONS (5)
  - ANGIOEDEMA [None]
  - BRONCHOSPASM [None]
  - DYSPNOEA [None]
  - FLUSHING [None]
  - RHINITIS [None]
